FAERS Safety Report 12212822 (Version 3)
Quarter: 2016Q4

REPORT INFORMATION
  Report Type: Report from Study
  Country: US (occurrence: US)
  Receive Date: 20160328
  Receipt Date: 20161021
  Transmission Date: 20170207
  Serious: Yes (Hospitalization)
  Sender: FDA-Public Use
  Company Number: PHHY2016US000533

PATIENT
  Age: 26 Year
  Sex: Female
  Weight: 63.4 kg

DRUGS (5)
  1. TECFIDERA [Suspect]
     Active Substance: DIMETHYL FUMARATE
     Indication: MULTIPLE SCLEROSIS
     Dosage: 240 MG, BID
     Route: 065
  2. GILENYA [Suspect]
     Active Substance: FINGOLIMOD HYDROCHLORIDE
     Indication: RELAPSING-REMITTING MULTIPLE SCLEROSIS
     Dosage: UNK UNK, QD
     Route: 048
  3. VITAMIN D3 [Concomitant]
     Active Substance: CHOLECALCIFEROL
     Indication: ROUTINE HEALTH MAINTENANCE
     Dosage: 2000 IU, QD
     Route: 048
  4. VALTREX [Concomitant]
     Active Substance: VALACYCLOVIR HYDROCHLORIDE
     Indication: PRODUCT USED FOR UNKNOWN INDICATION
     Dosage: UNK
     Route: 065
     Dates: start: 20160713, end: 20160720
  5. ZANAFLEX [Concomitant]
     Active Substance: TIZANIDINE HYDROCHLORIDE
     Indication: MUSCLE SPASMS
     Dosage: 2 MG
     Route: 048
     Dates: start: 20151230

REACTIONS (12)
  - Hypoaesthesia [Recovering/Resolving]
  - Dysphagia [Recovering/Resolving]
  - Multiple sclerosis relapse [Recovered/Resolved]
  - Blood glucose increased [Unknown]
  - CSF immunoglobulin increased [Unknown]
  - Urinary tract infection [Recovered/Resolved]
  - Dysarthria [Not Recovered/Not Resolved]
  - Pollakiuria [Unknown]
  - Headache [Not Recovered/Not Resolved]
  - Muscular weakness [Unknown]
  - Glycosylated haemoglobin increased [Unknown]
  - Paraesthesia [Not Recovered/Not Resolved]

NARRATIVE: CASE EVENT DATE: 20151205
